FAERS Safety Report 6567585-0 (Version None)
Quarter: 2010Q1

REPORT INFORMATION
  Report Type: 
  Country: None (occurrence: None)
  Receive Date: 20100202
  Receipt Date: 20100120
  Transmission Date: 20100710
  Serious: Yes (Other)
  Sender: FDA-Public Use
  Company Number: PHEH2010US01120

PATIENT
  Sex: Female

DRUGS (8)
  1. TOBI [Suspect]
     Indication: PSEUDOMONAS INFECTION
     Dosage: UNK, UNK
     Dates: start: 20090101
  2. TOBI [Suspect]
     Dosage: UNK
  3. XOPENEX [Concomitant]
     Dosage: 1.25MG/3ML, UNK
  4. BUDESONIDE [Concomitant]
     Dosage: 0.5MG/2ML, UNK
  5. BROVANA [Concomitant]
     Dosage: 15MCG, UNK
  6. SINGULAIR [Concomitant]
     Dosage: 10MG, UNK
  7. LIPITOR [Concomitant]
     Dosage: 10MG, UNK
  8. OXYBUTYNIN [Concomitant]
     Dosage: 10MG, UNK

REACTIONS (5)
  - BALANCE DISORDER [None]
  - DIZZINESS [None]
  - MALAISE [None]
  - MOVEMENT DISORDER [None]
  - NEUROMUSCULAR BLOCKADE [None]
